FAERS Safety Report 8424032-1 (Version None)
Quarter: 2012Q2

REPORT INFORMATION
  Report Type: 
  Country: None (occurrence: None)
  Receive Date: 20120608
  Receipt Date: 20110527
  Transmission Date: 20120825
  Serious: No
  Sender: FDA-Public Use
  Company Number: US-ASTRAZENECA-2010SE60349

PATIENT
  Age: 78 Year
  Sex: Female

DRUGS (6)
  1. NASONEX [Concomitant]
  2. NEXIUM [Concomitant]
  3. FARADIL [Concomitant]
  4. ADVAIR DISKUS 100/50 [Concomitant]
  5. PULMICORT FLEXHALER [Suspect]
     Indication: CHRONIC OBSTRUCTIVE PULMONARY DISEASE
     Route: 055
  6. PULMICORT FLEXHALER [Suspect]
     Indication: ASTHMA
     Route: 055

REACTIONS (5)
  - DRUG INTOLERANCE [None]
  - COUGH [None]
  - SNEEZING [None]
  - INFLAMMATION [None]
  - THROAT IRRITATION [None]
